FAERS Safety Report 7401838-9 (Version None)
Quarter: 2011Q2

REPORT INFORMATION
  Report Type: 
  Country: None (occurrence: None)
  Receive Date: 20110408
  Receipt Date: 20110214
  Transmission Date: 20111010
  Serious: Yes (Hospitalization)
  Sender: FDA-Public Use
  Company Number: US-BAYER-201021918NA

PATIENT
  Age: 27 Year
  Sex: Female
  Weight: 72.562 kg

DRUGS (4)
  1. YASMIN [Suspect]
     Indication: ORAL CONTRACEPTION
     Dosage: UNK UNK, QD
     Route: 048
     Dates: start: 20070116, end: 20070430
  2. HYDROCHLOROTHIAZIDE [Concomitant]
     Indication: JOINT SWELLING
     Dosage: UNK UNK, PRN
     Route: 048
     Dates: start: 20050930
  3. ALBUTEROL [Concomitant]
     Indication: DYSPNOEA
     Dosage: UNK
     Dates: start: 20061121
  4. ASCORBIC ACID [Concomitant]

REACTIONS (2)
  - DEEP VEIN THROMBOSIS [None]
  - PAIN IN EXTREMITY [None]
